FAERS Safety Report 14547258 (Version 1)
Quarter: 2018Q1

REPORT INFORMATION
  Report Type: Report from Study
  Country: CA (occurrence: CA)
  Receive Date: 20180219
  Receipt Date: 20180219
  Transmission Date: 20180509
  Serious: Yes (Other)
  Sender: FDA-Public Use
  Company Number: CA-JNJFOC-20180221524

PATIENT
  Age: 61 Year
  Sex: Male

DRUGS (4)
  1. REMICADE [Suspect]
     Active Substance: INFLIXIMAB
     Indication: COLITIS ULCERATIVE
     Dosage: STRENGTH = 100 MG
     Route: 042
  2. FRAGMIN [Concomitant]
     Active Substance: DALTEPARIN SODIUM
     Route: 058
  3. AVALIDE [Concomitant]
     Active Substance: HYDROCHLOROTHIAZIDE\IRBESARTAN
     Route: 048
  4. REMICADE [Suspect]
     Active Substance: INFLIXIMAB
     Indication: CROHN^S DISEASE
     Dosage: STRENGTH = 100 MG
     Route: 042

REACTIONS (3)
  - Malignant melanoma [Unknown]
  - Pneumonia [Not Recovered/Not Resolved]
  - Surgery [Unknown]

NARRATIVE: CASE EVENT DATE: 20180115
